FAERS Safety Report 13366965 (Version 1)
Quarter: 2017Q1

REPORT INFORMATION
  Report Type: Spontaneous
  Country: US (occurrence: US)
  Receive Date: 20170323
  Receipt Date: 20170323
  Transmission Date: 20170429
  Serious: Yes (Disabling)
  Sender: FDA-Public Use
  Company Number: None

PATIENT
  Age: 53 Year
  Sex: Female
  Weight: 72 kg

DRUGS (3)
  1. ISOGENICS SUPPLEMENTAL DRINK [Concomitant]
  2. CIPROFLOXACIN. [Suspect]
     Active Substance: CIPROFLOXACIN
     Indication: CYSTITIS
     Dosage: ?          QUANTITY:3 TABLET(S);?
     Route: 048
     Dates: start: 20100301, end: 20140331
  3. CIPROFLOXACIN. [Suspect]
     Active Substance: CIPROFLOXACIN
     Indication: URINARY TRACT INFECTION
     Dosage: ?          QUANTITY:3 TABLET(S);?
     Route: 048
     Dates: start: 20100301, end: 20140331

REACTIONS (3)
  - Tendon pain [None]
  - Back disorder [None]
  - Arthralgia [None]

NARRATIVE: CASE EVENT DATE: 20100301
